FAERS Safety Report 21652509 (Version 2)
Quarter: 2022Q4

REPORT INFORMATION
  Report Type: Spontaneous
  Country: MX (occurrence: None)
  Receive Date: 20221128
  Receipt Date: 20221130
  Transmission Date: 20230113
  Serious: Yes (Death, Other)
  Sender: FDA-Public Use
  Company Number: 2022A390206

PATIENT
  Age: 57 Year
  Sex: Male

DRUGS (4)
  1. OLAPARIB [Suspect]
     Active Substance: OLAPARIB
     Indication: Hormone-refractory prostate cancer
     Dosage: 300 MILLIGRAM, Q12H
     Route: 048
  2. OLAPARIB [Suspect]
     Active Substance: OLAPARIB
     Indication: Prostate cancer metastatic
     Dosage: 300 MILLIGRAM, Q12H
     Route: 048
  3. OLAPARIB [Suspect]
     Active Substance: OLAPARIB
     Indication: Hormone-refractory prostate cancer
     Dosage: 300 MILLIGRAM, QD
     Route: 048
  4. OLAPARIB [Suspect]
     Active Substance: OLAPARIB
     Indication: Prostate cancer metastatic
     Dosage: 300 MILLIGRAM, QD
     Route: 048

REACTIONS (9)
  - Deep vein thrombosis [Unknown]
  - Pulmonary embolism [Unknown]
  - Death [Fatal]
  - Thrombocytopenia [Unknown]
  - Neutropenia [Unknown]
  - Fatigue [Unknown]
  - Nausea [Unknown]
  - Vomiting [Unknown]
  - Anaemia [Unknown]
